FAERS Safety Report 4993501-9 (Version None)
Quarter: 2006Q2

REPORT INFORMATION
  Report Type: 
  Country: None (occurrence: None)
  Receive Date: 20060504
  Receipt Date: 20060504
  Transmission Date: 20061013
  Serious: Yes (Other)
  Sender: FDA-Public Use
  Company Number: None

PATIENT
  Age: 79 Year
  Sex: Male
  Weight: 70.3075 kg

DRUGS (5)
  1. PRAVACHOL [Suspect]
     Indication: HYPERCHOLESTEROLAEMIA
     Dosage: DAILY   PO  ABOUT 4-5 YEARS
     Route: 048
  2. DIOVAN [Concomitant]
  3. SYNTHROID [Concomitant]
  4. DIURETIC [Concomitant]
  5. CHOLESTYRAMINE [Concomitant]

REACTIONS (13)
  - AMYOTROPHIC LATERAL SCLEROSIS [None]
  - COUGH [None]
  - DYSARTHRIA [None]
  - DYSPHAGIA [None]
  - DYSPHASIA [None]
  - ELECTROMYOGRAM ABNORMAL [None]
  - MOTOR NEURONE DISEASE [None]
  - MUSCLE ATROPHY [None]
  - MUSCLE CONTRACTIONS INVOLUNTARY [None]
  - MUSCULAR WEAKNESS [None]
  - NEUROLOGICAL SYMPTOM [None]
  - PERIPHERAL SENSORY NEUROPATHY [None]
  - SPEECH DISORDER [None]
